FAERS Safety Report 13066993 (Version 1)
Quarter: 2016Q4

REPORT INFORMATION
  Report Type: Spontaneous
  Country: BR (occurrence: BR)
  Receive Date: 20161227
  Receipt Date: 20161227
  Transmission Date: 20170207
  Serious: Yes (Hospitalization, Other)
  Sender: FDA-Public Use
  Company Number: BR-GILEAD-2016-0250260

PATIENT
  Age: 69 Year
  Sex: Male
  Weight: 97 kg

DRUGS (17)
  1. ATORVASTATIN [Concomitant]
     Active Substance: ATORVASTATIN
     Dosage: 20 MG, UNK
  2. CALCITRIOL. [Concomitant]
     Active Substance: CALCITRIOL
     Dosage: UNK
  3. RANITIDINE. [Concomitant]
     Active Substance: RANITIDINE
     Dosage: 150 MG, UNK
  4. CARVEDILOL. [Concomitant]
     Active Substance: CARVEDILOL
     Dosage: 25 MG, UNK
  5. FUROSEMIDE. [Concomitant]
     Active Substance: FUROSEMIDE
     Dosage: 40 MG, UNK
  6. ALLOPURINOL. [Concomitant]
     Active Substance: ALLOPURINOL
     Dosage: 100 MG, UNK
  7. HYDRALAZINE [Concomitant]
     Active Substance: HYDRALAZINE HYDROCHLORIDE
     Dosage: 25 MG, UNK
     Route: 048
  8. INSULIN NPH                        /01223208/ [Concomitant]
  9. DIPIRONE [Concomitant]
     Active Substance: METAMIZOLE SODIUM
  10. ISOSORBIDE                         /07346401/ [Concomitant]
     Dosage: 40 MG, UNK
  11. BROMAZEPAM [Concomitant]
     Active Substance: BROMAZEPAM
     Dosage: 3 MG, UNK
  12. CODEINE [Concomitant]
     Active Substance: CODEINE
  13. SOVALDI [Suspect]
     Active Substance: SOFOSBUVIR
     Indication: HEPATITIS C
     Dosage: 400 MG, UNK
     Route: 048
     Dates: start: 20160706, end: 20160712
  14. SOVALDI [Suspect]
     Active Substance: SOFOSBUVIR
     Dosage: 400 MG, UNK
     Route: 048
     Dates: start: 20160721, end: 20160927
  15. RIBAVIRIN. [Concomitant]
     Active Substance: RIBAVIRIN
     Indication: HEPATITIS C
     Dosage: 250 MG, QD
     Route: 048
  16. ACETYLSALICYLIC ACID [Concomitant]
     Active Substance: ASPIRIN
     Dosage: 100 MG, UNK
  17. INSULIN                            /00646001/ [Concomitant]
     Active Substance: INSULIN NOS

REACTIONS (9)
  - Confusional state [Recovered/Resolved]
  - Blood glucose abnormal [Unknown]
  - Fall [Recovered/Resolved]
  - Diarrhoea [Recovered/Resolved]
  - Tongue disorder [Recovered/Resolved]
  - Screaming [Recovered/Resolved]
  - Asthenia [Recovered/Resolved]
  - Seizure [Recovered/Resolved]
  - Memory impairment [Recovered/Resolved]

NARRATIVE: CASE EVENT DATE: 20160710
